FAERS Safety Report 17771388 (Version 1)
Quarter: 2020Q2

REPORT INFORMATION
  Report Type: Spontaneous
  Country: US (occurrence: US)
  Receive Date: 20200512
  Receipt Date: 20200512
  Transmission Date: 20200714
  Serious: Yes (Other)
  Sender: FDA-Public Use
  Company Number: US-TARO-2020TAR00929

PATIENT

DRUGS (1)
  1. FLUOROURACIL TOPICAL CREAM USP 5% [Suspect]
     Active Substance: FLUOROURACIL
     Indication: SKIN LESION
     Dosage: APPLY TO LESIONS ON ARM 2X/DAY FOR 1 MONTH
     Route: 061
     Dates: start: 20200403, end: 20200405

REACTIONS (2)
  - Inflammatory bowel disease [Unknown]
  - Abdominal pain lower [Recovering/Resolving]

NARRATIVE: CASE EVENT DATE: 20200405
